FAERS Safety Report 5359508-7 (Version None)
Quarter: 2007Q2

REPORT INFORMATION
  Report Type: 
  Country: None (occurrence: None)
  Receive Date: 20070615
  Receipt Date: 20070605
  Transmission Date: 20071010
  Serious: Yes (Hospitalization)
  Sender: FDA-Public Use
  Company Number: HK-PFIZER INC-2007046777

PATIENT
  Sex: Male
  Weight: 57 kg

DRUGS (2)
  1. SU-011,248 [Suspect]
     Indication: GASTRIC CANCER
     Route: 048
  2. PANTOPRAZOLE SODIUM [Concomitant]
     Route: 048
     Dates: start: 20070529

REACTIONS (1)
  - SINUS BRADYCARDIA [None]
